FAERS Safety Report 5388572-4 (Version None)
Quarter: 2007Q3

REPORT INFORMATION
  Report Type: 
  Country: None (occurrence: None)
  Receive Date: 20070716
  Receipt Date: 20070702
  Transmission Date: 20080115
  Serious: Yes (Other)
  Sender: FDA-Public Use
  Company Number: JP-PFIZER INC-2007052413

PATIENT
  Age: 79 Year
  Sex: Female

DRUGS (1)
  1. SOLANAX [Suspect]
     Route: 048

REACTIONS (4)
  - ARTERIAL DISORDER [None]
  - CHILLS [None]
  - DIZZINESS [None]
  - PHOTOPHOBIA [None]
